FAERS Safety Report 4850965-9 (Version None)
Quarter: 2005Q4

REPORT INFORMATION
  Report Type: 
  Country: None (occurrence: None)
  Receive Date: 20051212
  Receipt Date: 20051130
  Transmission Date: 20060501
  Serious: Yes (Other)
  Sender: FDA-Public Use
  Company Number: CA-KINGPHARMUSA00001-K200501543

PATIENT
  Sex: Female
  Weight: 1 kg

DRUGS (4)
  1. ALTACE [Suspect]
     Indication: DRUG EXPOSURE DURING PREGNANCY
     Dosage: 50 MG, QD
  2. NIFEDIPINE [Concomitant]
     Indication: DRUG EXPOSURE DURING PREGNANCY
     Dosage: 60 MG, UNK
  3. ATENOLOL [Concomitant]
     Indication: DRUG EXPOSURE DURING PREGNANCY
     Dosage: 50 MG, UNK
  4. HYDROXYCHLOROQUINE SULFATE [Concomitant]
     Dosage: 200 MG, UNK

REACTIONS (7)
  - BLOOD BILIRUBIN INCREASED [None]
  - BLOOD CREATININE INCREASED [None]
  - BLOOD UREA INCREASED [None]
  - DRUG EXPOSURE DURING PREGNANCY [None]
  - JAUNDICE [None]
  - OLIGOHYDRAMNIOS [None]
  - RESPIRATORY DISTRESS [None]
